FAERS Safety Report 13791826 (Version 1)
Quarter: 2017Q3

REPORT INFORMATION
  Report Type: Spontaneous
  Country: DE (occurrence: DE)
  Receive Date: 20170725
  Receipt Date: 20170725
  Transmission Date: 20171127
  Serious: Yes (Other)
  Sender: FDA-Public Use
  Company Number: DE-BAUSCH-BL-2017-022277

PATIENT
  Age: 57 Year
  Sex: Female
  Weight: 68 kg

DRUGS (3)
  1. GENTAMICIN POS [Suspect]
     Active Substance: GENTAMICIN SULFATE
     Indication: RETINAL DETACHMENT
     Dosage: SEVERAL TIMES DAILY
     Route: 047
  2. DEXA GENTAMICIN [Suspect]
     Active Substance: DEXAMETHASONE SODIUM PHOSPHATE\GENTAMICIN SULFATE
     Indication: RETINAL DETACHMENT
     Dosage: SEVERAL TIMES DAILY
     Route: 047
  3. DEXA EDO [Suspect]
     Active Substance: DEXAMETHASONE SODIUM PHOSPHATE
     Indication: RETINAL DETACHMENT
     Dosage: SEVERAL TIMES DAILY
     Route: 047
     Dates: start: 20150816

REACTIONS (1)
  - Corneal deposits [Not Recovered/Not Resolved]

NARRATIVE: CASE EVENT DATE: 201703
